FAERS Safety Report 7219441-2 (Version None)
Quarter: 2011Q1

REPORT INFORMATION
  Report Type: 
  Country: None (occurrence: None)
  Receive Date: 20110103
  Receipt Date: 20101216
  Transmission Date: 20110831
  Serious: Yes (Other)
  Sender: FDA-Public Use
  Company Number: 2010P1003388

PATIENT
  Age: 85 Year
  Sex: Female
  Weight: 54.4316 kg

DRUGS (4)
  1. CARDIZEM [Concomitant]
  2. COLCHICINE (WESTWARD) (NO PREF. NAME) [Suspect]
     Indication: CONSTIPATION
     Dosage: 0.6MG;TID; PO, 0.6 MG;BID; PO
     Route: 048
     Dates: start: 20030101, end: 20101201
  3. COLCHICINE (WESTWARD) (NO PREF. NAME) [Suspect]
     Indication: CONSTIPATION
     Dosage: 0.6MG;TID; PO, 0.6 MG;BID; PO
     Route: 048
     Dates: start: 20101214
  4. LIPITOR [Concomitant]

REACTIONS (6)
  - HYPOAESTHESIA [None]
  - PARAESTHESIA [None]
  - DRUG INEFFECTIVE [None]
  - WRIST FRACTURE [None]
  - OFF LABEL USE [None]
  - PAIN IN EXTREMITY [None]
